FAERS Safety Report 22614699 (Version 3)
Quarter: 2024Q3

REPORT INFORMATION
  Report Type: Spontaneous
  Country: JP (occurrence: JP)
  Receive Date: 20230619
  Receipt Date: 20240710
  Transmission Date: 20241016
  Serious: No
  Sender: PIERRE FABRE MEDICAMENT
  Company Number: JP-PFM-2020-13103

PATIENT
  Age: 0 Year
  Sex: Male
  Weight: 4.7 kg

DRUGS (4)
  1. PROPRANOLOL HYDROCHLORIDE [Suspect]
     Active Substance: PROPRANOLOL HYDROCHLORIDE
     Indication: Infantile haemangioma
     Dosage: AT DOSAGE STIPULATED IN THE PACKAGE INSERT
     Route: 048
     Dates: start: 20200402
  2. PROPRANOLOL HYDROCHLORIDE [Suspect]
     Active Substance: PROPRANOLOL HYDROCHLORIDE
     Dosage: 3 MG/KG/DAY
     Route: 048
     Dates: start: 20200423
  3. PROPRANOLOL HYDROCHLORIDE [Suspect]
     Active Substance: PROPRANOLOL HYDROCHLORIDE
     Dosage: 1 MG/KG/DAY
     Route: 048
     Dates: start: 20200424
  4. Incremin [Concomitant]
     Indication: Product used for unknown indication
     Dosage: UNK
     Route: 048

REACTIONS (1)
  - Pallor [Recovered/Resolved]

NARRATIVE: CASE EVENT DATE: 20200424
